FAERS Safety Report 5710927-6 (Version None)
Quarter: 2008Q2

REPORT INFORMATION
  Report Type: 
  Country: None (occurrence: None)
  Receive Date: 20080421
  Receipt Date: 20080414
  Transmission Date: 20081010
  Serious: Yes (Disabling)
  Sender: FDA-Public Use
  Company Number: PHHY2008BR05476

PATIENT
  Sex: Male

DRUGS (1)
  1. PARLODEL [Suspect]
     Dosage: 1 TABLET EVERY DAY
     Route: 048

REACTIONS (1)
  - INFERTILITY FEMALE [None]
